FAERS Safety Report 17022682 (Version 1)
Quarter: 2019Q4

REPORT INFORMATION
  Report Type: Spontaneous
  Country: US (occurrence: US)
  Receive Date: 20191112
  Receipt Date: 20191112
  Transmission Date: 20200122
  Serious: No
  Sender: FDA-Public Use
  Company Number: US-009507513-1911USA000290

PATIENT
  Age: 36 Year
  Sex: Female

DRUGS (5)
  1. PROVENTIL [Suspect]
     Active Substance: ALBUTEROL
     Dosage: UNK
  2. PROPOFOL. [Concomitant]
     Active Substance: PROPOFOL
  3. KETAMINE [Concomitant]
     Active Substance: KETAMINE
     Indication: ANALGESIC THERAPY
  4. FENTANYL. [Concomitant]
     Active Substance: FENTANYL
  5. KETAMINE [Concomitant]
     Active Substance: KETAMINE
     Indication: BRONCHOSPASM
     Dosage: 15 MCG/KG/MINUTE
     Route: 042

REACTIONS (1)
  - Drug ineffective [Unknown]
